FAERS Safety Report 8006666-1 (Version None)
Quarter: 2011Q4

REPORT INFORMATION
  Report Type: 
  Country: None (occurrence: None)
  Receive Date: 20111227
  Receipt Date: 20111221
  Transmission Date: 20120403
  Serious: Yes (Life-Threatening)
  Sender: FDA-Public Use
  Company Number: US-BAYER-2011-122791

PATIENT
  Sex: Male

DRUGS (1)
  1. AVELOX [Suspect]
     Dosage: 1 DF, UNK
     Route: 048
     Dates: start: 20111201, end: 20111201

REACTIONS (4)
  - PRURITUS [None]
  - WEIGHT INCREASED [None]
  - ERYTHEMA [None]
  - ANAPHYLACTIC SHOCK [None]
